FAERS Safety Report 6713036-2 (Version None)
Quarter: 2010Q2

REPORT INFORMATION
  Report Type: 
  Country: None (occurrence: None)
  Receive Date: 20100505
  Receipt Date: 20100505
  Transmission Date: 20101027
  Serious: No
  Sender: FDA-Public Use
  Company Number: None

PATIENT
  Age: 2 Year
  Sex: Male
  Weight: 14.9 kg

DRUGS (1)
  1. ZYRTEC [Suspect]
     Indication: MULTIPLE ALLERGIES
     Dosage: .5 TSP EVERY 24 HRS ORAL
     Route: 048
     Dates: start: 20100413, end: 20100423

REACTIONS (4)
  - DEHYDRATION [None]
  - PALLOR [None]
  - SLUGGISHNESS [None]
  - VOMITING [None]
